FAERS Safety Report 16608802 (Version 1)
Quarter: 2019Q3

REPORT INFORMATION
  Report Type: Spontaneous
  Country: US (occurrence: US)
  Receive Date: 20190606
  Receipt Date: 20190606
  Transmission Date: 20191004
  Serious: No
  Sender: FDA-Public Use
  Company Number: None

PATIENT
  Age: 62 Year
  Sex: Female

DRUGS (3)
  1. IBRANCE [Suspect]
     Active Substance: PALBOCICLIB
     Route: 048
     Dates: start: 20190329
  2. MOTRIN [Concomitant]
     Active Substance: IBUPROFEN
  3. LETROZOLE. [Concomitant]
     Active Substance: LETROZOLE

REACTIONS (4)
  - Dyspepsia [None]
  - Fatigue [None]
  - Oropharyngeal pain [None]
  - Cough [None]

NARRATIVE: CASE EVENT DATE: 20190406
